FAERS Safety Report 22157427 (Version 5)
Quarter: 2024Q2

REPORT INFORMATION
  Report Type: Spontaneous
  Country: CZ (occurrence: CZ)
  Receive Date: 20230330
  Receipt Date: 20240606
  Transmission Date: 20240715
  Serious: Yes (Hospitalization, Other)
  Sender: FDA-Public Use
  Company Number: CZ-BIOGEN-2022BI01162642

PATIENT
  Age: 30 Year
  Sex: Female

DRUGS (24)
  1. TYSABRI [Suspect]
     Active Substance: NATALIZUMAB
     Indication: Multiple sclerosis
     Route: 050
     Dates: end: 20230105
  2. TYSABRI [Suspect]
     Active Substance: NATALIZUMAB
     Route: 050
     Dates: start: 20220224
  3. TYSABRI [Suspect]
     Active Substance: NATALIZUMAB
     Route: 050
  4. TYSABRI [Suspect]
     Active Substance: NATALIZUMAB
     Route: 050
     Dates: start: 20101119
  5. ZYRTEC [Concomitant]
     Active Substance: CETIRIZINE HYDROCHLORIDE
     Indication: Asthma
     Route: 050
  6. Combair (salbutamol with ipratropium bromide) [Concomitant]
     Indication: Product used for unknown indication
     Dosage: 1 X D
     Route: 050
  7. MAGNESIUM CARBONATE\MAGNESIUM OXIDE [Concomitant]
     Active Substance: MAGNESIUM CARBONATE\MAGNESIUM OXIDE
     Indication: Product used for unknown indication
     Dosage: AS NEEDED
     Route: 050
  8. VIGANTOL [Concomitant]
     Indication: Product used for unknown indication
     Route: 050
  9. VENTOLIN [Concomitant]
     Active Substance: ALBUTEROL SULFATE
     Indication: Asthma
     Dosage: AS NEEDED
     Route: 050
  10. NADROPARIN CALCIUM [Concomitant]
     Active Substance: NADROPARIN CALCIUM
     Indication: Thrombosis prophylaxis
     Dosage: 0.3 ML/24 HOURS
     Route: 050
  11. DICLOFENAC [Concomitant]
     Active Substance: DICLOFENAC
     Indication: Product used for unknown indication
     Route: 050
  12. DICLOFENAC [Concomitant]
     Active Substance: DICLOFENAC
     Route: 050
  13. ACETAMINOPHEN [Concomitant]
     Active Substance: ACETAMINOPHEN
     Indication: Product used for unknown indication
     Dosage: ORALLY OR SUPPOSITORY
     Route: 050
  14. PERFALGAN [Concomitant]
     Active Substance: ACETAMINOPHEN
     Indication: Product used for unknown indication
     Route: 050
  15. METAMIZOLE SODIUM\PITOFENONE HYDROCHLORIDE [Concomitant]
     Active Substance: METAMIZOLE SODIUM\PITOFENONE HYDROCHLORIDE
     Indication: Product used for unknown indication
     Dosage: 20-20-20
     Route: 050
  16. Ferretab [Concomitant]
     Indication: Product used for unknown indication
     Dosage: TBL ORALLY 1-1-1
     Route: 050
  17. PYRIDOXINE [Concomitant]
     Active Substance: PYRIDOXINE
     Indication: Product used for unknown indication
     Dosage: TBL ORALLY 1-0-0
     Route: 050
  18. DIMETHICONE [Concomitant]
     Active Substance: DIMETHICONE
     Indication: Product used for unknown indication
     Dosage: TBL ORALLY 2-2-2
     Route: 050
  19. OMEPRAZOLE [Concomitant]
     Active Substance: DONEPEZIL HYDROCHLORIDE\OMEPRAZOLE\OMEPRAZOLE MAGNESIUM
     Indication: Product used for unknown indication
     Dosage: 1-0-0
     Route: 050
  20. POTASSIUM CHLORIDE [Concomitant]
     Active Substance: POTASSIUM CHLORIDE
     Indication: Product used for unknown indication
     Dosage: 1-0-0
     Route: 050
  21. MEDROL [Concomitant]
     Active Substance: METHYLPREDNISOLONE
     Indication: Product used for unknown indication
     Dosage: 1-0-0
     Route: 050
  22. CETIRIZINE HYDROCHLORIDE [Concomitant]
     Active Substance: CETIRIZINE HYDROCHLORIDE
     Indication: Product used for unknown indication
     Dosage: 1-0-0
     Route: 050
  23. SYMBICORT [Concomitant]
     Active Substance: BUDESONIDE\FORMOTEROL FUMARATE DIHYDRATE
     Indication: Product used for unknown indication
     Dosage: 2X A DAY A SINGLE INHALATION
     Route: 050
  24. CINARIZIN [Concomitant]
     Indication: Product used for unknown indication
     Dosage: 1-0-1
     Route: 050

REACTIONS (3)
  - Meconium in amniotic fluid [Recovered/Resolved]
  - Breech presentation [Unknown]
  - Maternal exposure during pregnancy [Recovered/Resolved]

NARRATIVE: CASE EVENT DATE: 20220501
